FAERS Safety Report 11253215 (Version 1)
Quarter: 2015Q3

REPORT INFORMATION
  Report Type: Spontaneous
  Country: US (occurrence: None)
  Receive Date: 20150707
  Receipt Date: 20150707
  Transmission Date: 20151125
  Serious: Yes (Hospitalization)
  Sender: FDA-Public Use
  Company Number: 1224850-2014-00003

PATIENT
  Age: 52 Year

DRUGS (15)
  1. DOXAZOSIN [Concomitant]
     Active Substance: DOXAZOSIN\DOXAZOSIN MESYLATE
  2. TUMS [Concomitant]
     Active Substance: CALCIUM CARBONATE
  3. OMEPRAZOLE. [Concomitant]
     Active Substance: OMEPRAZOLE
  4. LIBERTY CYCLER [Concomitant]
     Active Substance: DEVICE
  5. CALCITROL [Concomitant]
     Active Substance: CALCITRIOL
  6. LACTULOSE. [Concomitant]
     Active Substance: LACTULOSE
  7. LISINOPRIL. [Concomitant]
     Active Substance: LISINOPRIL
  8. PRAVASTATIN [Concomitant]
     Active Substance: PRAVASTATIN\PRAVASTATIN SODIUM
  9. PHOSLO [Suspect]
     Active Substance: CALCIUM ACETATE
     Indication: HYPOPHOSPHATAEMIA
  10. DELFLEX [Concomitant]
     Active Substance: CALCIUM CHLORIDE\DEXTROSE MONOHYDRATE\MAGNESIUM CHLORIDE\SODIUM CHLORIDE\SODIUM LACTATE
  11. CARVEDILOL. [Concomitant]
     Active Substance: CARVEDILOL
  12. LIBERTY CYCLER CASSETTE [Concomitant]
     Active Substance: DEVICE
  13. ASPIRIN. [Concomitant]
     Active Substance: ASPIRIN
  14. NEPHRO-VITE [Concomitant]
  15. SENSIPAR [Concomitant]
     Active Substance: CINACALCET HYDROCHLORIDE

REACTIONS (4)
  - Pericarditis [None]
  - Discomfort [None]
  - Fluid overload [None]
  - Therapy cessation [None]

NARRATIVE: CASE EVENT DATE: 20140130
